FAERS Safety Report 25735474 (Version 2)
Quarter: 2025Q3

REPORT INFORMATION
  Report Type: Spontaneous
  Country: EU (occurrence: EU)
  Receive Date: 20250828
  Receipt Date: 20250904
  Transmission Date: 20251020
  Serious: Yes (Hospitalization)
  Sender: MYLAN
  Company Number: EU-MYLANLABS-2025M1067085

PATIENT
  Sex: Male

DRUGS (3)
  1. CLOZARIL [Suspect]
     Active Substance: CLOZAPINE
     Indication: Schizophrenia
  2. CLOZARIL [Suspect]
     Active Substance: CLOZAPINE
     Dates: start: 20250820, end: 20250824
  3. CLOZARIL [Suspect]
     Active Substance: CLOZAPINE
     Dates: start: 20250825, end: 20250827

REACTIONS (8)
  - Hospitalisation [Unknown]
  - Respiratory disorder [Unknown]
  - Full blood count abnormal [Unknown]
  - Leukocytosis [Unknown]
  - Malaise [Unknown]
  - Confusional state [Unknown]
  - Toxicity to various agents [Unknown]
  - Incorrect dose administered [Unknown]

NARRATIVE: CASE EVENT DATE: 20250820
